FAERS Safety Report 13049368 (Version 3)
Quarter: 2017Q1

REPORT INFORMATION
  Report Type: Spontaneous
  Country: GB (occurrence: GB)
  Receive Date: 20161221
  Receipt Date: 20170123
  Transmission Date: 20170428
  Serious: Yes (Hospitalization)
  Sender: FDA-Public Use
  Company Number: GB-TEVA-721133ACC

PATIENT
  Age: 71 Year
  Sex: Male

DRUGS (2)
  1. FLOMAXTRA XL? [Concomitant]
     Indication: PROSTATOMEGALY
     Dosage: 400 MICROGRAM DAILY;
     Dates: start: 2013
  2. SERTRALINE HYDROCHLORIDE. [Suspect]
     Active Substance: SERTRALINE HYDROCHLORIDE
     Indication: ANXIETY
     Dosage: 100 MILLIGRAM DAILY;
     Dates: start: 20160605

REACTIONS (8)
  - Dizziness [Recovering/Resolving]
  - Dysuria [Recovering/Resolving]
  - Bladder dysfunction [Recovering/Resolving]
  - Cardiac disorder [Recovering/Resolving]
  - Suffocation feeling [Recovering/Resolving]
  - Hypersensitivity [Recovering/Resolving]
  - Anxiety [Recovering/Resolving]
  - Stress [Recovering/Resolving]

NARRATIVE: CASE EVENT DATE: 20160606
